FAERS Safety Report 26199809 (Version 1)
Quarter: 2025Q4

REPORT INFORMATION
  Report Type: Spontaneous
  Country: US (occurrence: US)
  Receive Date: 20251225
  Receipt Date: 20251225
  Transmission Date: 20260117
  Serious: No
  Sender: ROCHE
  Company Number: US-ROCHE-10000465218

PATIENT

DRUGS (9)
  1. RITUXIMAB [Suspect]
     Active Substance: RITUXIMAB
     Indication: Lupus nephritis
  2. CELLCEPT [Suspect]
     Active Substance: MYCOPHENOLATE MOFETIL
     Indication: Lupus nephritis
  3. MYFORTIC [Suspect]
     Active Substance: MYCOPHENOLATE SODIUM
     Indication: Lupus nephritis
  4. HYDROXYCHLOROQUINE SULFATE [Concomitant]
     Active Substance: HYDROXYCHLOROQUINE SULFATE
  5. MEDROL [Concomitant]
     Active Substance: METHYLPREDNISOLONE
  6. LOSARTAN [Concomitant]
     Active Substance: LOSARTAN
  7. SILDENAFIL [Concomitant]
     Active Substance: SILDENAFIL
  8. BENLYSTA [Concomitant]
     Active Substance: BELIMUMAB
  9. TACROLIMUS [Concomitant]
     Active Substance: TACROLIMUS

REACTIONS (3)
  - Protein urine present [Unknown]
  - Off label use [Unknown]
  - Off label use [Unknown]
